FAERS Safety Report 13846153 (Version 1)
Quarter: 2017Q3

REPORT INFORMATION
  Report Type: Spontaneous
  Country: US (occurrence: US)
  Receive Date: 20170808
  Receipt Date: 20170808
  Transmission Date: 20171127
  Serious: No
  Sender: FDA-Public Use
  Company Number: US-ROCHE-731112

PATIENT
  Age: 63 Year
  Sex: Female
  Weight: 71.7 kg

DRUGS (1)
  1. BONIVA [Suspect]
     Active Substance: IBANDRONATE SODIUM
     Indication: OSTEOPOROSIS
     Route: 048

REACTIONS (5)
  - Arthralgia [Recovering/Resolving]
  - Gait disturbance [Unknown]
  - Back pain [Unknown]
  - Myalgia [Unknown]
  - Muscle strain [Unknown]

NARRATIVE: CASE EVENT DATE: 20101002
